FAERS Safety Report 19251278 (Version 1)
Quarter: 2021Q2

REPORT INFORMATION
  Report Type: Spontaneous
  Country: US (occurrence: US)
  Receive Date: 20210512
  Receipt Date: 20210512
  Transmission Date: 20210717
  Serious: Yes (Other)
  Sender: FDA-Public Use
  Company Number: US-BAUSCH-BL-2021-016397

PATIENT
  Age: 80 Year
  Sex: Male

DRUGS (4)
  1. PROLENSA [Suspect]
     Active Substance: BROMFENAC SODIUM
     Indication: RETINAL OEDEMA
     Route: 047
     Dates: start: 2021
  2. PREDNISOLONE. [Suspect]
     Active Substance: PREDNISOLONE
     Indication: RETINAL OEDEMA
     Dosage: AS NEEDED
     Route: 047
     Dates: start: 2020
  3. DUREZOL [Suspect]
     Active Substance: DIFLUPREDNATE
     Indication: RETINAL OEDEMA
     Route: 047
     Dates: start: 2020
  4. AZOPT [Concomitant]
     Active Substance: BRINZOLAMIDE
     Indication: PRODUCT USED FOR UNKNOWN INDICATION
     Route: 047
     Dates: start: 2020

REACTIONS (3)
  - Glaucoma [Unknown]
  - Vision blurred [Not Recovered/Not Resolved]
  - Symptom recurrence [Not Recovered/Not Resolved]

NARRATIVE: CASE EVENT DATE: 2021
